FAERS Safety Report 9088509 (Version 1)
Quarter: 2013Q1

REPORT INFORMATION
  Report Type: Spontaneous
  Country: US (occurrence: US)
  Receive Date: 20130131
  Receipt Date: 20130131
  Transmission Date: 20140127
  Serious: Yes (Hospitalization, Other)
  Sender: FDA-Public Use
  Company Number: US-009507513-1301USA014288

PATIENT
  Sex: Female

DRUGS (12)
  1. SINGULAIR [Suspect]
  2. CETIRIZINE HYDROCHLORIDE [Concomitant]
  3. FLUOXETINE [Concomitant]
  4. BENZTROPINE MESYLATE [Concomitant]
  5. RISPERIDONE [Concomitant]
  6. LORATADINE [Concomitant]
  7. METHYLPHENIDATE [Concomitant]
  8. BUSPIRONE HYDROCHLORIDE [Concomitant]
  9. NAPROXEN [Concomitant]
  10. ATENOLOL [Concomitant]
  11. ACYCLOVIR [Concomitant]
  12. STUDY DRUG (UNSPECIFIED) [Concomitant]

REACTIONS (1)
  - Suicide attempt [Unknown]
